FAERS Safety Report 5030584-4 (Version None)
Quarter: 2006Q2

REPORT INFORMATION
  Report Type: 
  Country: None (occurrence: None)
  Receive Date: 20060615
  Receipt Date: 20060525
  Transmission Date: 20061013
  Serious: Yes (Hospitalization, Other)
  Sender: FDA-Public Use
  Company Number: 2006053191

PATIENT
  Sex: Male

DRUGS (2)
  1. BEXTRA [Suspect]
     Indication: PAIN
     Dosage: 20 MG (20 MG 1 IN 1 D)
     Dates: start: 20020801
  2. VIOXX [Suspect]
     Indication: ILL-DEFINED DISORDER

REACTIONS (7)
  - ANGIONEUROTIC OEDEMA [None]
  - ATRIAL FIBRILLATION [None]
  - CHEST DISCOMFORT [None]
  - LIVER DISORDER [None]
  - PALPITATIONS [None]
  - STEVENS-JOHNSON SYNDROME [None]
  - VIRAL INFECTION [None]
